FAERS Safety Report 25961649 (Version 2)
Quarter: 2025Q4

REPORT INFORMATION
  Report Type: Spontaneous
  Country: JP (occurrence: JP)
  Receive Date: 20251027
  Receipt Date: 20251121
  Transmission Date: 20260117
  Serious: Yes (Hospitalization, Other)
  Sender: PANACEA BIOTEC PHARMA LIMITED
  Company Number: JP-PBT-010937

PATIENT
  Age: 72 Year
  Sex: Female

DRUGS (8)
  1. TACROLIMUS [Suspect]
     Active Substance: TACROLIMUS
     Indication: Myopathy
     Route: 048
  2. PREDNISOLONE [Suspect]
     Active Substance: PREDNISOLONE
     Indication: Myopathy
     Route: 065
  3. TACROLIMUS [Suspect]
     Active Substance: TACROLIMUS
     Indication: Anti-SRP antibody positive
     Route: 048
  4. PREDNISOLONE [Suspect]
     Active Substance: PREDNISOLONE
     Indication: Anti-SRP antibody positive
     Route: 065
  5. PREDNISOLONE [Suspect]
     Active Substance: PREDNISOLONE
     Indication: Myopathy
     Route: 065
  6. PREDNISOLONE [Suspect]
     Active Substance: PREDNISOLONE
     Indication: Myopathy
     Route: 065
  7. PREDNISOLONE [Suspect]
     Active Substance: PREDNISOLONE
     Indication: Anti-SRP antibody positive
     Route: 065
  8. PREDNISOLONE [Suspect]
     Active Substance: PREDNISOLONE
     Indication: Anti-SRP antibody positive
     Route: 065

REACTIONS (4)
  - Cardiomyopathy [Recovered/Resolved]
  - Drug ineffective [Unknown]
  - Product use in unapproved indication [Unknown]
  - Condition aggravated [Recovered/Resolved]
